FAERS Safety Report 8436351-3 (Version None)
Quarter: 2012Q2

REPORT INFORMATION
  Report Type: 
  Country: None (occurrence: None)
  Receive Date: 20120614
  Receipt Date: 20120605
  Transmission Date: 20120825
  Serious: Yes (Hospitalization)
  Sender: FDA-Public Use
  Company Number: US-ASTRAZENECA-2012SE24013

PATIENT
  Age: 65 Year
  Sex: Male

DRUGS (3)
  1. NEXIUM [Suspect]
     Route: 048
  2. NEXIUM [Suspect]
     Dosage: DOSAGE INCREASED
     Route: 048
  3. OTHER MEDICATIONS [Concomitant]

REACTIONS (2)
  - INTENTIONAL DRUG MISUSE [None]
  - ULCER HAEMORRHAGE [None]
